FAERS Safety Report 6402786-3 (Version None)
Quarter: 2009Q4

REPORT INFORMATION
  Report Type: 
  Country: None (occurrence: None)
  Receive Date: 20091016
  Receipt Date: 20070308
  Transmission Date: 20100525
  Serious: Yes (Disabling)
  Sender: FDA-Public Use
  Company Number: US-ASTRAZENECA-2006UW07770

PATIENT
  Sex: Female
  Weight: 101.6 kg

DRUGS (51)
  1. SEROQUEL [Suspect]
     Indication: DEPRESSION
     Dosage: 25 MG-400 MG
     Route: 048
     Dates: start: 20000314
  2. SEROQUEL [Suspect]
     Indication: INSOMNIA
     Dosage: 25 MG-400 MG
     Route: 048
     Dates: start: 20000314
  3. ZYPREXA [Concomitant]
  4. SINGULAIR [Concomitant]
  5. PREVACID [Concomitant]
  6. GLUCOVANCE [Concomitant]
  7. PAXIL [Concomitant]
  8. KLONOPIN [Concomitant]
  9. NEURONTIN [Concomitant]
  10. ALBUTEROL [Concomitant]
  11. NAPROSYN [Concomitant]
  12. ACTOS [Concomitant]
  13. NEXIUM [Concomitant]
  14. REGLAN [Concomitant]
  15. ADVAIR DISKUS 100/50 [Concomitant]
  16. PREDNISONE [Concomitant]
  17. PREMARIN [Concomitant]
  18. TRAZODONE HCL [Concomitant]
  19. NOVOLOG [Concomitant]
  20. ATROVENT [Concomitant]
  21. LANTUS [Concomitant]
  22. DYAZIDE [Concomitant]
  23. THEOPHYLLINE [Concomitant]
  24. SPIRIVA [Concomitant]
  25. COLACE [Concomitant]
  26. VISTARIL [Concomitant]
  27. DETROL LA [Concomitant]
  28. AMARYL [Concomitant]
  29. DIPHENHYDRAMINE HCL [Concomitant]
  30. METHADONE HYDROCHLORIDE [Concomitant]
  31. PROCHLORPERAZINE [Concomitant]
  32. LOVASTATIN [Concomitant]
  33. ASPIRIN [Concomitant]
  34. DARVOCET [Concomitant]
  35. AMITRIPTYLINE [Concomitant]
  36. GLUCOTROL XL [Concomitant]
  37. ZONEGRAN [Concomitant]
  38. NORTRIPTYLINE [Concomitant]
  39. MUCINEX [Concomitant]
  40. FLUOXETINE [Concomitant]
  41. TRIAMCINOLONE [Concomitant]
  42. HYDROCORTISONE [Concomitant]
  43. MIRTAZAPINE [Concomitant]
  44. NYSTATIN [Concomitant]
  45. ABILIFY [Concomitant]
  46. VIOXX [Concomitant]
  47. ALLEGRA [Concomitant]
  48. PSEUDOEPHEDRINE HCL [Concomitant]
  49. NABUMETONE [Concomitant]
  50. PULMICORT [Concomitant]
  51. AMBIEN [Concomitant]

REACTIONS (2)
  - ILL-DEFINED DISORDER [None]
  - INJURY [None]
